FAERS Safety Report 8368883-0 (Version None)
Quarter: 2012Q2

REPORT INFORMATION
  Report Type: 
  Country: None (occurrence: None)
  Receive Date: 20120516
  Receipt Date: 20120502
  Transmission Date: 20120825
  Serious: Yes (Hospitalization)
  Sender: FDA-Public Use
  Company Number: UTC-018391

PATIENT
  Age: 83 Year
  Sex: Female
  Weight: 82.9 kg

DRUGS (3)
  1. REMODULIN [Suspect]
     Dosage: 25.92 UG/KG (0.018 UG/KG, 1 IN 1 MIN), SUBCUTANEOUS
     Route: 058
     Dates: start: 20120312
  2. DIURETICS (DIURETICS) [Concomitant]
  3. PLAVIX [Concomitant]

REACTIONS (1)
  - WHITE BLOOD CELL COUNT INCREASED [None]
